FAERS Safety Report 6997995-9 (Version None)
Quarter: 2010Q3

REPORT INFORMATION
  Report Type: 
  Country: None (occurrence: None)
  Receive Date: 20100920
  Receipt Date: 20070626
  Transmission Date: 20110219
  Serious: Yes (Hospitalization, Other)
  Sender: FDA-Public Use
  Company Number: US-ASTRAZENECA-2006UW21984

PATIENT
  Age: 22041 Day
  Sex: Female
  Weight: 120 kg

DRUGS (6)
  1. SEROQUEL [Suspect]
     Dosage: 12.5 MG - 50 MG QHS
     Route: 048
     Dates: start: 20051209
  2. PREDNISONE [Concomitant]
     Dosage: 20 MG - 60 MG DAILY
     Route: 048
     Dates: start: 20051206
  3. PRINIVIL/ ZESTRIL [Concomitant]
     Route: 048
     Dates: start: 20050312
  4. NEURONTIN [Concomitant]
     Route: 048
     Dates: start: 20060314
  5. HUMULIN- N, NOVOLIN-N [Concomitant]
     Dosage: 70 UNITS
     Route: 058
     Dates: start: 20060313
  6. INSULIN [Concomitant]
     Dates: start: 20060219

REACTIONS (4)
  - DIABETES MELLITUS [None]
  - DIABETIC KETOACIDOSIS [None]
  - HYPERGLYCAEMIA [None]
  - PANCREATITIS [None]
